FAERS Safety Report 23993776 (Version 2)
Quarter: 2024Q2

REPORT INFORMATION
  Report Type: Spontaneous
  Country: IT (occurrence: IT)
  Receive Date: 20240620
  Receipt Date: 20240625
  Transmission Date: 20240716
  Serious: Yes (Other)
  Sender: FDA-Public Use
  Company Number: None

PATIENT
  Age: 67 Year
  Sex: Male

DRUGS (5)
  1. FLUOROURACIL [Suspect]
     Active Substance: FLUOROURACIL
     Indication: Colon cancer metastatic
     Dosage: START OF THERAPY 24/05/2024 - THERAPY EVERY 21 DAYS - I CYCLE - BOLUS INFUSION.
     Dates: start: 20240524, end: 20240524
  2. IRINOTECAN [Suspect]
     Active Substance: IRINOTECAN
     Indication: Colon cancer metastatic
     Dosage: START OF THERAPY 24/05/2024 - THERAPY EVERY 21 DAYS - I CYCLE
     Dates: start: 20240524, end: 20240524
  3. ZALTRAP [Suspect]
     Active Substance: ZIV-AFLIBERCEPT
     Indication: Colon cancer metastatic
     Dosage: START OF THERAPY 24/05/2024 - THERAPY EVERY 21 DAYS - I CYCLE
     Dates: start: 20240524, end: 20240524
  4. LEVOLEUCOVORIN [Concomitant]
     Active Substance: LEVOLEUCOVORIN
     Dosage: LEVO FOLINIC ACID
  5. FLUOROURACIL [Suspect]
     Active Substance: FLUOROURACIL
     Indication: Colon cancer metastatic
     Dosage: START OF THERAPY 24/05/2024 - THERAPY EVERY 21 DAYS
     Dates: start: 20240524, end: 20240526

REACTIONS (3)
  - Thrombocytopenia [Recovering/Resolving]
  - Febrile neutropenia [Recovering/Resolving]
  - Diarrhoea [Recovering/Resolving]

NARRATIVE: CASE EVENT DATE: 20240601
